FAERS Safety Report 5844397-4 (Version None)
Quarter: 2008Q3

REPORT INFORMATION
  Report Type: 
  Country: None (occurrence: None)
  Receive Date: 20080813
  Receipt Date: 20080807
  Transmission Date: 20090109
  Serious: Yes (Death)
  Sender: FDA-Public Use
  Company Number: NO-MERCK-0808NOR00004

PATIENT
  Age: 69 Year
  Sex: Male

DRUGS (5)
  1. ZETIA [Suspect]
     Indication: HYPERCHOLESTEROLAEMIA
     Route: 048
  2. IRBESARTAN [Concomitant]
     Route: 048
  3. ESOMEPRAZOLE MAGNESIUM [Concomitant]
     Route: 048
  4. ATORVASTATIN CALCIUM [Concomitant]
     Indication: HYPERCHOLESTEROLAEMIA
     Route: 048
  5. TURMERIC [Suspect]
     Route: 048

REACTIONS (5)
  - DEATH [None]
  - GASTROINTESTINAL PAIN [None]
  - HEPATIC NECROSIS [None]
  - HYPERBILIRUBINAEMIA [None]
  - JAUNDICE [None]
